FAERS Safety Report 5375921-6 (Version None)
Quarter: 2007Q3

REPORT INFORMATION
  Report Type: 
  Country: None (occurrence: None)
  Receive Date: 20070702
  Receipt Date: 20070622
  Transmission Date: 20080115
  Serious: Yes (Hospitalization)
  Sender: FDA-Public Use
  Company Number: FRWYE298302APR07

PATIENT
  Age: 20 Year
  Sex: Female

DRUGS (12)
  1. EFFEXOR [Suspect]
     Dosage: UNKNOWN
     Route: 048
     Dates: end: 20070215
  2. RUBOZINC [Suspect]
     Dosage: UNKNOWN
     Route: 048
     Dates: start: 20070223, end: 20070201
  3. ATARAX [Concomitant]
     Dosage: UNKNOWN
     Dates: start: 20070111, end: 20070226
  4. CALCIUM CARBONATE [Concomitant]
     Dosage: UNKNOWN
     Dates: start: 20070111, end: 20070226
  5. HEPT-A-MYL [Concomitant]
     Dosage: UNKNOWN
     Route: 048
     Dates: start: 20070213
  6. PHOCYTAN [Concomitant]
     Dosage: UNKNOWN
     Dates: start: 20070213
  7. VITAMIN B1 AND B6 [Concomitant]
     Dosage: UNKNOWN
     Route: 048
     Dates: start: 20070213
  8. DIFFU K [Concomitant]
     Dosage: UNKNOWN
     Route: 048
     Dates: start: 20070213
  9. IMODIUM [Concomitant]
     Dosage: UNKNOWN
     Route: 048
     Dates: start: 20070213, end: 20070101
  10. TIORFAN [Concomitant]
     Dosage: UNKNOWN
     Route: 048
     Dates: start: 20070101
  11. ZANTAC [Suspect]
     Dosage: UNKNOWN
     Route: 048
     Dates: start: 20070101, end: 20070201
  12. COLECALCIFEROL [Concomitant]
     Dosage: UNKNOWN
     Dates: start: 20070111, end: 20070226

REACTIONS (2)
  - NEUTROPENIA [None]
  - NORMOCHROMIC NORMOCYTIC ANAEMIA [None]
